FAERS Safety Report 15123959 (Version 1)
Quarter: 2018Q3

REPORT INFORMATION
  Report Type: Report from Study
  Country: None (occurrence: BR)
  Receive Date: 20180710
  Receipt Date: 20180710
  Transmission Date: 20181010
  Serious: Yes (Other)
  Sender: FDA-Public Use
  Company Number: BR-ABBVIE-18K-020-2410644-00

PATIENT
  Age: 27 Year
  Sex: Female
  Weight: 53.8 kg

DRUGS (3)
  1. HUMIRA [Suspect]
     Active Substance: ADALIMUMAB
     Route: 058
     Dates: start: 20180620
  2. HUMIRA [Suspect]
     Active Substance: ADALIMUMAB
     Indication: RHEUMATOID ARTHRITIS
     Route: 058
     Dates: start: 20160701, end: 201802
  3. MIRTAZAPINE. [Concomitant]
     Active Substance: MIRTAZAPINE
     Indication: ANXIETY

REACTIONS (15)
  - Anal fissure [Not Recovered/Not Resolved]
  - Haematochezia [Recovered/Resolved]
  - Rash [Recovering/Resolving]
  - Weight decreased [Not Recovered/Not Resolved]
  - Lactose intolerance [Recovering/Resolving]
  - Abdominal pain [Not Recovered/Not Resolved]
  - Diarrhoea [Unknown]
  - Faeces discoloured [Unknown]
  - Gastrointestinal disorder [Not Recovered/Not Resolved]
  - Malaise [Not Recovered/Not Resolved]
  - Proctalgia [Recovered/Resolved]
  - Sensory disturbance [Not Recovered/Not Resolved]
  - Abscess [Not Recovered/Not Resolved]
  - Pyrexia [Not Recovered/Not Resolved]
  - Constipation [Unknown]

NARRATIVE: CASE EVENT DATE: 201703
